FAERS Safety Report 14109664 (Version 2)
Quarter: 2017Q4

REPORT INFORMATION
  Report Type: Spontaneous
  Country: SK (occurrence: SK)
  Receive Date: 20171020
  Receipt Date: 20171206
  Transmission Date: 20180321
  Serious: Yes (Death)
  Sender: FDA-Public Use
  Company Number: SK-ROCHE-2009328

PATIENT
  Age: 71 Year
  Sex: Female
  Weight: 91 kg

DRUGS (1)
  1. ACTILYSE [Suspect]
     Active Substance: ALTEPLASE
     Indication: ISCHAEMIC STROKE
     Route: 042
     Dates: start: 20170210, end: 20170210

REACTIONS (3)
  - Cardiac arrest [Fatal]
  - Hypertensive crisis [Fatal]
  - Pyrexia [Fatal]

NARRATIVE: CASE EVENT DATE: 20170212
